FAERS Safety Report 10152582 (Version 1)
Quarter: 2014Q2

REPORT INFORMATION
  Report Type: Spontaneous
  Country: US (occurrence: US)
  Receive Date: 20140505
  Receipt Date: 20140505
  Transmission Date: 20141212
  Serious: No
  Sender: FDA-Public Use
  Company Number: US-ASTRAZENECA-2013SE72737

PATIENT
  Age: 46 Year
  Sex: Female
  Weight: 81.6 kg

DRUGS (29)
  1. PRILOSEC [Suspect]
     Indication: IRRITABLE BOWEL SYNDROME
     Route: 048
     Dates: end: 201309
  2. PRILOSEC [Suspect]
     Indication: CROHN^S DISEASE
     Route: 048
     Dates: end: 201309
  3. PRILOSEC [Suspect]
     Indication: ABDOMINAL PAIN UPPER
     Route: 048
     Dates: end: 201309
  4. PRILOSEC [Suspect]
     Indication: NAUSEA
     Route: 048
     Dates: end: 201309
  5. PRILOSEC [Suspect]
     Indication: IRRITABLE BOWEL SYNDROME
     Route: 048
     Dates: end: 201309
  6. PRILOSEC [Suspect]
     Indication: CROHN^S DISEASE
     Route: 048
     Dates: end: 201309
  7. PRILOSEC [Suspect]
     Indication: ABDOMINAL PAIN UPPER
     Route: 048
     Dates: end: 201309
  8. PRILOSEC [Suspect]
     Indication: NAUSEA
     Route: 048
     Dates: end: 201309
  9. ROBINUL [Suspect]
     Indication: IRRITABLE BOWEL SYNDROME
     Route: 065
     Dates: start: 2013, end: 201309
  10. ROBINUL [Suspect]
     Indication: CROHN^S DISEASE
     Route: 065
     Dates: start: 2013, end: 201309
  11. ROBINUL [Suspect]
     Indication: ABDOMINAL PAIN UPPER
     Route: 065
     Dates: start: 2013, end: 201309
  12. ROBINUL [Suspect]
     Indication: NAUSEA
     Route: 065
     Dates: start: 2013, end: 201309
  13. ROBINUL [Suspect]
     Indication: IRRITABLE BOWEL SYNDROME
     Route: 065
  14. ROBINUL [Suspect]
     Indication: CROHN^S DISEASE
     Route: 065
  15. ROBINUL [Suspect]
     Indication: ABDOMINAL PAIN UPPER
     Route: 065
  16. ROBINUL [Suspect]
     Indication: NAUSEA
     Route: 065
  17. PENTASA [Suspect]
     Indication: IRRITABLE BOWEL SYNDROME
     Route: 065
  18. PENTASA [Suspect]
     Indication: CROHN^S DISEASE
     Route: 065
  19. PENTASA [Suspect]
     Indication: ABDOMINAL PAIN UPPER
     Route: 065
  20. PENTASA [Suspect]
     Indication: NAUSEA
     Route: 065
  21. PENTASA [Suspect]
     Indication: IRRITABLE BOWEL SYNDROME
     Route: 065
  22. PENTASA [Suspect]
     Indication: CROHN^S DISEASE
     Route: 065
  23. PENTASA [Suspect]
     Indication: ABDOMINAL PAIN UPPER
     Route: 065
  24. PENTASA [Suspect]
     Indication: NAUSEA
     Route: 065
  25. ZOFRAN [Suspect]
     Indication: NAUSEA
     Route: 065
  26. XANAX [Suspect]
     Indication: ANXIETY
     Route: 065
  27. XANAX [Suspect]
     Indication: PANIC ATTACK
     Route: 065
  28. XANAX [Suspect]
     Indication: ANXIETY
     Route: 065
  29. XANAX [Suspect]
     Indication: PANIC ATTACK
     Route: 065

REACTIONS (12)
  - Chills [Not Recovered/Not Resolved]
  - Tremor [Not Recovered/Not Resolved]
  - Crying [Not Recovered/Not Resolved]
  - Vomiting [Not Recovered/Not Resolved]
  - Pallor [Not Recovered/Not Resolved]
  - Influenza like illness [Not Recovered/Not Resolved]
  - Headache [Not Recovered/Not Resolved]
  - Aphagia [Not Recovered/Not Resolved]
  - Hyperhidrosis [Not Recovered/Not Resolved]
  - Panic attack [Not Recovered/Not Resolved]
  - Anxiety [Not Recovered/Not Resolved]
  - Intentional product misuse [Unknown]
